FAERS Safety Report 25380498 (Version 4)
Quarter: 2025Q3

REPORT INFORMATION
  Report Type: Report from Study
  Country: US (occurrence: US)
  Receive Date: 20250530
  Receipt Date: 20250913
  Transmission Date: 20251020
  Serious: No
  Sender: SANOFI AVENTIS
  Company Number: US-SA-2025SA153886

PATIENT
  Age: 76 Year
  Sex: Female
  Weight: 105.91 kg

DRUGS (42)
  1. DUPILUMAB [Suspect]
     Active Substance: DUPILUMAB
     Indication: Dermatitis atopic
     Dosage: 300 MG, QOW
     Route: 058
  2. OPSUMIT [Suspect]
     Active Substance: MACITENTAN
  3. ADEMPAS [Suspect]
     Active Substance: RIOCIGUAT
     Dosage: 0.5 MG, TID
  4. VITAMIN D NOS [Concomitant]
     Active Substance: CHOLECALCIFEROL\ERGOCALCIFEROL
  5. VITAMIN B COMPLEX [Concomitant]
     Active Substance: CYANOCOBALAMIN\DEXPANTHENOL\NIACINAMIDE\PYRIDOXINE HYDROCHLORIDE\RIBOFLAVIN 5^-PHOSPHATE SODIUM\THIA
  6. RETINOL [Concomitant]
     Active Substance: RETINOL
  7. VITAMIN C [Concomitant]
     Active Substance: ASCORBIC ACID
  8. LEXAPRO [Concomitant]
     Active Substance: ESCITALOPRAM OXALATE
  9. ZOLPIDEM TARTRATE [Concomitant]
     Active Substance: ZOLPIDEM TARTRATE
  10. SPIRONOLACTONE [Concomitant]
     Active Substance: SPIRONOLACTONE
  11. TRAZODONE HCL [Concomitant]
     Active Substance: TRAZODONE HYDROCHLORIDE
  12. REPATHA [Concomitant]
     Active Substance: EVOLOCUMAB
  13. SOTALOL [Concomitant]
     Active Substance: SOTALOL
  14. OXYGEN [Concomitant]
     Active Substance: OXYGEN
  15. TORSEMIDE [Concomitant]
     Active Substance: TORSEMIDE
  16. ASPIRIN [Concomitant]
     Active Substance: ASPIRIN
  17. ELIQUIS [Concomitant]
     Active Substance: APIXABAN
  18. ALBUTEROL SULFATE [Concomitant]
     Active Substance: ALBUTEROL SULFATE
  19. CARVEDILOL [Concomitant]
     Active Substance: CARVEDILOL
  20. ENTRESTO [Concomitant]
     Active Substance: SACUBITRIL\VALSARTAN
  21. VALACYCLOVIR [Concomitant]
     Active Substance: VALACYCLOVIR HYDROCHLORIDE
  22. SINGULAIR [Concomitant]
     Active Substance: MONTELUKAST SODIUM
  23. MAGNESIUM OXIDE [Concomitant]
     Active Substance: MAGNESIUM OXIDE
  24. TRETINOIN [Concomitant]
     Active Substance: TRETINOIN
  25. AZITHROMYCIN [Concomitant]
     Active Substance: AZITHROMYCIN
  26. COREG [Concomitant]
     Active Substance: CARVEDILOL
  27. BETAMETHASONE VALERATE [Concomitant]
     Active Substance: BETAMETHASONE VALERATE
  28. ALLOPURINOL [Concomitant]
     Active Substance: ALLOPURINOL
  29. KETOCONAZOLE [Concomitant]
     Active Substance: KETOCONAZOLE
  30. MINERALS\VITAMINS [Concomitant]
     Active Substance: MINERALS\VITAMINS
  31. CYANOCOBALAMIN [Concomitant]
     Active Substance: CYANOCOBALAMIN
  32. INOSITOL [Concomitant]
     Active Substance: INOSITOL
  33. TRICOR [Concomitant]
     Active Substance: FENOFIBRATE
  34. CHROMIUM PICOLINATE [Concomitant]
     Active Substance: CHROMIUM PICOLINATE
  35. LIDOCAINE [Concomitant]
     Active Substance: LIDOCAINE
  36. BUSPIRONE HCL [Concomitant]
     Active Substance: BUSPIRONE HYDROCHLORIDE
  37. BUDESONIDE [Concomitant]
     Active Substance: BUDESONIDE
  38. METROGEL [Concomitant]
     Active Substance: METRONIDAZOLE
  39. THIAMINE HYDROCHLORIDE [Concomitant]
     Active Substance: THIAMINE HYDROCHLORIDE
  40. MOUNJARO [Concomitant]
     Active Substance: TIRZEPATIDE
  41. ASPIRIN [Concomitant]
     Active Substance: ASPIRIN
  42. NIACIN [Concomitant]
     Active Substance: NIACIN

REACTIONS (10)
  - Swelling [Unknown]
  - Weight increased [Unknown]
  - Oedema peripheral [Unknown]
  - Dyspnoea [Unknown]
  - Musculoskeletal stiffness [Unknown]
  - Peripheral swelling [Unknown]
  - Joint swelling [Unknown]
  - Rash [Not Recovered/Not Resolved]
  - Accidental exposure to product [Unknown]
  - Exposure via skin contact [Unknown]

NARRATIVE: CASE EVENT DATE: 20250825
